FAERS Safety Report 16046380 (Version 1)
Quarter: 2019Q1

REPORT INFORMATION
  Report Type: Spontaneous
  Country: US (occurrence: US)
  Receive Date: 20190307
  Receipt Date: 20190307
  Transmission Date: 20190418
  Serious: Yes (Hospitalization)
  Sender: FDA-Public Use
  Company Number: US-VERTEX PHARMACEUTICALS-2019-001859

PATIENT
  Sex: Female

DRUGS (20)
  1. SYMDEKO [Suspect]
     Active Substance: IVACAFTOR\TEZACAFTOR
     Indication: CYSTIC FIBROSIS
     Dosage: 100 MG TEZACAFTOR/150 MG IVACAFTOR AM; 150 MG IVACAFTOR PM
     Route: 048
     Dates: start: 20180630
  2. SODIUM CHLORIDE. [Concomitant]
     Active Substance: SODIUM CHLORIDE
  3. CEPHALEXIN                         /00145501/ [Concomitant]
     Active Substance: CEPHALEXIN
  4. LEVOFLOXACIN. [Concomitant]
     Active Substance: LEVOFLOXACIN
  5. ONDANSETRON [Concomitant]
     Active Substance: ONDANSETRON
  6. TOBRAMYCIN. [Concomitant]
     Active Substance: TOBRAMYCIN
  7. AQUADEKS                           /07679501/ [Concomitant]
     Active Substance: MINERALS\VITAMINS
  8. SMZ-TMP [Concomitant]
     Active Substance: SULFAMETHOXAZOLE\TRIMETHOPRIM
  9. VITAMIN D3 [Concomitant]
     Active Substance: CHOLECALCIFEROL
  10. PULMOZYME [Concomitant]
     Active Substance: DORNASE ALFA
  11. PANTOPRAZOLE [Concomitant]
     Active Substance: PANTOPRAZOLE
  12. TIZANIDINE. [Concomitant]
     Active Substance: TIZANIDINE
  13. DULOXETINE. [Concomitant]
     Active Substance: DULOXETINE
  14. NOVOLOG [Concomitant]
     Active Substance: INSULIN ASPART
  15. IBUPROFEN. [Concomitant]
     Active Substance: IBUPROFEN
  16. RANITIDINE. [Concomitant]
     Active Substance: RANITIDINE
  17. AZITHROMYCIN ANHYDROUS. [Concomitant]
     Active Substance: AZITHROMYCIN ANHYDROUS
  18. ZOLPIDEM [Concomitant]
     Active Substance: ZOLPIDEM\ZOLPIDEM TARTRATE
  19. GENTAMYCIN                         /00047101/ [Concomitant]
     Active Substance: GENTAMICIN
  20. OXYCODONE [Concomitant]
     Active Substance: OXYCODONE

REACTIONS (1)
  - Hospitalisation [Not Recovered/Not Resolved]
